FAERS Safety Report 16864033 (Version 1)
Quarter: 2019Q3

REPORT INFORMATION
  Report Type: Spontaneous
  Country: US (occurrence: US)
  Receive Date: 20190927
  Receipt Date: 20190927
  Transmission Date: 20191005
  Serious: Yes (Hospitalization)
  Sender: FDA-Public Use
  Company Number: US-ALLERGAN-1936727US

PATIENT
  Sex: Female

DRUGS (12)
  1. UNKNOWN MEDICATION FOR MIGRAINE [Concomitant]
  2. METAMUCIL [Concomitant]
     Active Substance: PLANTAGO SEED
     Indication: CONSTIPATION
     Route: 065
  3. ZOFRAN [Concomitant]
     Active Substance: ONDANSETRON HYDROCHLORIDE
     Indication: NAUSEA
     Route: 065
  4. PROBIOTIC [Concomitant]
     Active Substance: PROBIOTICS NOS
     Indication: CONSTIPATION
  5. UNSPECIFIED MEDICAITON FOR CONSTIPATION [Concomitant]
     Indication: CONSTIPATION
     Dosage: UNK, TID
  6. LINZESS [Suspect]
     Active Substance: LINACLOTIDE
     Dosage: 290 ?G, QD
     Route: 065
     Dates: start: 20190719
  7. ALIGN [Concomitant]
     Active Substance: BIFIDOBACTERIUM LONGUM SUBSP. INFANTIS
     Indication: CONSTIPATION
     Route: 065
  8. IV FLUIDS [Concomitant]
     Active Substance: UNSPECIFIED INGREDIENT
  9. LINZESS [Suspect]
     Active Substance: LINACLOTIDE
     Dosage: 145 ?G
     Route: 065
  10. IBGARD [Concomitant]
     Indication: CONSTIPATION
  11. LINZESS [Suspect]
     Active Substance: LINACLOTIDE
     Indication: IRRITABLE BOWEL SYNDROME
     Dosage: 2 LINZESS OF 290 MCG IN THE MORNING
     Route: 065
     Dates: start: 201907, end: 20190907
  12. MAGNESIUM CITRATE. [Concomitant]
     Active Substance: MAGNESIUM CITRATE
     Indication: CONSTIPATION

REACTIONS (7)
  - Drug ineffective [Unknown]
  - Constipation [Unknown]
  - Off label use [Unknown]
  - Emotional disorder [Unknown]
  - Weight decreased [Unknown]
  - Abdominal distension [Unknown]
  - Tenderness [Unknown]

NARRATIVE: CASE EVENT DATE: 201905
